FAERS Safety Report 18895208 (Version 1)
Quarter: 2021Q1

REPORT INFORMATION
  Report Type: Spontaneous
  Country: IT (occurrence: IT)
  Receive Date: 20210216
  Receipt Date: 20210216
  Transmission Date: 20210420
  Serious: Yes (Other)
  Sender: FDA-Public Use
  Company Number: IT-AUROBINDO-AUR-APL-2021-005693

PATIENT
  Age: 79 Year
  Sex: Female

DRUGS (2)
  1. DELECIT [Suspect]
     Active Substance: CHOLINE ALFOSCERATE
     Indication: COGNITIVE DISORDER
     Dosage: UNK
     Route: 065
     Dates: start: 20201101
  2. RIVASTIGMINE. [Suspect]
     Active Substance: RIVASTIGMINE
     Indication: PRODUCT USED FOR UNKNOWN INDICATION
     Dosage: UNK
     Route: 065
     Dates: start: 20201231

REACTIONS (2)
  - Flank pain [Unknown]
  - Oliguria [Unknown]

NARRATIVE: CASE EVENT DATE: 20210104
